FAERS Safety Report 6692122-X (Version None)
Quarter: 2010Q2

REPORT INFORMATION
  Report Type: 
  Country: None (occurrence: None)
  Receive Date: 20100422
  Receipt Date: 20090615
  Transmission Date: 20101027
  Serious: No
  Sender: FDA-Public Use
  Company Number: US-ASTRAZENECA-2009UW15181

PATIENT
  Age: 87 Year
  Sex: Male

DRUGS (3)
  1. TOPROL-XL [Suspect]
     Route: 048
     Dates: start: 20020101, end: 20090601
  2. TOPROL-XL [Suspect]
     Dosage: 50 MG TABLET 2 TABLETS IN AM
     Route: 048
     Dates: start: 20090601
  3. TOPROL-XL [Suspect]
     Dosage: 50 MG IN AM AND 50 MG IN PM
     Route: 048
     Dates: start: 20090601

REACTIONS (1)
  - ABDOMINAL DISCOMFORT [None]
